FAERS Safety Report 25180975 (Version 2)
Quarter: 2025Q2

REPORT INFORMATION
  Report Type: Report from Study
  Country: KR (occurrence: KR)
  Receive Date: 20250409
  Receipt Date: 20250514
  Transmission Date: 20250717
  Serious: Yes (Hospitalization)
  Sender: ABBVIE
  Company Number: KR-ABBVIE-6209207

PATIENT
  Age: 42 Year
  Sex: Female
  Weight: 68 kg

DRUGS (4)
  1. RINVOQ [Suspect]
     Active Substance: UPADACITINIB
     Indication: Crohn^s disease
     Route: 048
     Dates: start: 20250109
  2. Synerjet [Concomitant]
     Indication: Prophylaxis
     Route: 048
     Dates: start: 20250109, end: 20250113
  3. Impactamin [Concomitant]
     Indication: Prophylaxis
     Route: 048
     Dates: start: 20240919
  4. Godex [Concomitant]
     Indication: Prophylaxis
     Route: 048
     Dates: start: 20250306

REACTIONS (1)
  - Abdominal pain [Recovered/Resolved]

NARRATIVE: CASE EVENT DATE: 20250309
